FAERS Safety Report 5983768-2 (Version None)
Quarter: 2008Q4

REPORT INFORMATION
  Report Type: 
  Country: None (occurrence: None)
  Receive Date: 20081208
  Receipt Date: 20080914
  Transmission Date: 20090506
  Serious: No
  Sender: FDA-Public Use
  Company Number: US-AMGEN-KDL306639

PATIENT
  Sex: Female
  Weight: 81.3 kg

DRUGS (9)
  1. ENBREL [Suspect]
     Indication: RHEUMATOID ARTHRITIS
     Route: 058
     Dates: start: 20010901
  2. ARAVA [Concomitant]
  3. CELEBREX [Concomitant]
  4. FOLIC ACID [Concomitant]
  5. RESTORIL [Concomitant]
  6. ASPIRIN [Concomitant]
  7. SINGULAIR [Concomitant]
  8. DETROL [Concomitant]
  9. NASONEX [Concomitant]

REACTIONS (4)
  - PRODUCTIVE COUGH [None]
  - SINUSITIS [None]
  - TOOTH ABSCESS [None]
  - URINARY TRACT INFECTION [None]
